FAERS Safety Report 22305433 (Version 1)
Quarter: 2023Q2

REPORT INFORMATION
  Report Type: Spontaneous
  Country: US (occurrence: US)
  Receive Date: 20230510
  Receipt Date: 20230510
  Transmission Date: 20230722
  Serious: Yes (Other)
  Sender: FDA-Public Use
  Company Number: US-PURDUE PHARMA-USA-2023-0301975

PATIENT
  Age: 72 Year
  Sex: Female
  Weight: 62.59 kg

DRUGS (4)
  1. DOCUSATE SODIUM\SENNOSIDES [Suspect]
     Active Substance: DOCUSATE SODIUM\SENNOSIDES
     Indication: Constipation
     Dosage: 2 OR 3 TABLETS DAILY FOR 4 TO 5 DAYS
     Route: 048
  2. DOCUSATE SODIUM\SENNOSIDES [Suspect]
     Active Substance: DOCUSATE SODIUM\SENNOSIDES
     Dosage: 2-3 TABLET, DAILY
     Route: 048
     Dates: start: 202304
  3. DOCUSATE SODIUM\SENNOSIDES [Suspect]
     Active Substance: DOCUSATE SODIUM\SENNOSIDES
     Dosage: TID
     Route: 048
     Dates: start: 202304
  4. MIRALAX [Concomitant]
     Active Substance: POLYETHYLENE GLYCOL 3350
     Indication: Product used for unknown indication
     Dosage: UNK
     Route: 065

REACTIONS (4)
  - Faecaloma [Recovered/Resolved]
  - Diarrhoea [Recovered/Resolved]
  - Therapeutic product effect delayed [Recovered/Resolved]
  - Drug ineffective [Recovered/Resolved]

NARRATIVE: CASE EVENT DATE: 20230401
